FAERS Safety Report 12638553 (Version 1)
Quarter: 2016Q3

REPORT INFORMATION
  Report Type: Spontaneous
  Country: JP (occurrence: JP)
  Receive Date: 20160809
  Receipt Date: 20160809
  Transmission Date: 20161109
  Serious: Yes (Other)
  Sender: FDA-Public Use
  Company Number: JP-JNJFOC-20160316643

PATIENT
  Age: 56 Year
  Sex: Female

DRUGS (6)
  1. FOSCAVIR [Concomitant]
     Active Substance: FOSCARNET SODIUM
     Route: 065
  2. REMICADE [Suspect]
     Active Substance: INFLIXIMAB
     Indication: ACUTE GRAFT VERSUS HOST DISEASE
     Dosage: ON DAY 49
     Route: 042
  3. GANCICLOVIR. [Concomitant]
     Active Substance: GANCICLOVIR
     Route: 042
  4. METHYLPREDNISOLONE. [Concomitant]
     Active Substance: METHYLPREDNISOLONE
     Route: 065
  5. REMICADE [Suspect]
     Active Substance: INFLIXIMAB
     Indication: ACUTE GRAFT VERSUS HOST DISEASE
     Dosage: ON DAY 35 WAS STARTED ON INFLIXIMAB
     Route: 042
  6. ADENOSINE TRIPHOSPHATE [Suspect]
     Active Substance: ADENOSINE TRIPHOSPHATE
     Indication: PRODUCT USED FOR UNKNOWN INDICATION
     Route: 065

REACTIONS (2)
  - Viral haemorrhagic cystitis [Unknown]
  - Off label use [Unknown]
